FAERS Safety Report 8952286 (Version 1)
Quarter: 2012Q4

REPORT INFORMATION
  Report Type: Report from Study
  Country: AU (occurrence: AU)
  Receive Date: 20121205
  Receipt Date: 20121205
  Transmission Date: 20130627
  Serious: Yes (Life-Threatening, Hospitalization)
  Sender: FDA-Public Use
  Company Number: AU-009507513-1211AUS012680

PATIENT
  Age: 66 Year
  Sex: Male
  Weight: 77 kg

DRUGS (15)
  1. TEMOZOLOMIDE [Suspect]
     Indication: GLIOBLASTOMA
     Dosage: 150 mg, qd
     Route: 048
     Dates: start: 20091202, end: 20100103
  2. TEMOZOLOMIDE [Suspect]
     Dosage: 140 mg, qd
     Route: 048
     Dates: start: 20100210, end: 20100214
  3. TEMOZOLOMIDE [Suspect]
     Dosage: 75 mg, qd
     Route: 048
     Dates: start: 20100215
  4. STUDY DRUG (UNSPECIFIED) [Suspect]
     Indication: GLIOBLASTOMA
     Dosage: UNK
     Route: 042
     Dates: start: 20091202, end: 20100113
  5. STUDY DRUG (UNSPECIFIED) [Suspect]
     Dosage: UNK
     Route: 042
     Dates: start: 20100210
  6. GLICLAZIDE [Concomitant]
     Dosage: 90 mg, UNK
     Route: 048
     Dates: start: 2005
  7. ATORVASTATIN [Concomitant]
     Dosage: 20 mg, UNK
     Route: 048
     Dates: start: 2001
  8. TELMISARTAN [Concomitant]
     Dosage: 80/12.5 mg daily
     Route: 048
     Dates: start: 2002
  9. RANITIDINE [Concomitant]
     Dosage: 150 mg, qd
     Route: 048
     Dates: start: 1989
  10. ALPRAZOLAM [Concomitant]
     Dosage: 1 mg, qd
     Route: 048
     Dates: start: 2002
  11. DEXAMETHASONE [Concomitant]
     Dosage: 4 mg, qd
     Route: 048
     Dates: start: 20091202, end: 20091223
  12. DEXAMETHASONE [Concomitant]
     Dosage: 6 mg, qd
     Route: 048
     Dates: start: 20091223
  13. METFORMIN [Concomitant]
     Dosage: 500 mg, qd
     Route: 048
     Dates: start: 20091223, end: 20091229
  14. METFORMIN [Concomitant]
     Dosage: 1000 mg, qd
     Dates: start: 20091230
  15. ENDONE [Concomitant]
     Dosage: 5 mg, 1 in 1, prn
     Route: 048
     Dates: start: 20091213

REACTIONS (3)
  - Epistaxis [Recovered/Resolved with Sequelae]
  - Anaemia [Recovered/Resolved]
  - Thrombocytopenia [Recovered/Resolved]
